FAERS Safety Report 20614938 (Version 2)
Quarter: 2022Q1

REPORT INFORMATION
  Report Type: Other
  Country: JP (occurrence: None)
  Receive Date: 20220321
  Receipt Date: 20220324
  Transmission Date: 20220423
  Serious: Yes (Death, Other)
  Sender: FDA-Public Use
  Company Number: JP-CHUGAI-2022009597

PATIENT
  Age: 62 Year
  Sex: Male

DRUGS (1)
  1. XELODA [Suspect]
     Active Substance: CAPECITABINE
     Indication: Oesophageal carcinoma
     Dosage: UNK
     Route: 048

REACTIONS (3)
  - Disease progression [Fatal]
  - Metastases to lung [Unknown]
  - Off label use [Unknown]
